FAERS Safety Report 12281254 (Version 3)
Quarter: 2016Q2

REPORT INFORMATION
  Report Type: Spontaneous
  Country: FR (occurrence: FR)
  Receive Date: 20160419
  Receipt Date: 20160527
  Transmission Date: 20160815
  Serious: Yes (Life-Threatening, Hospitalization, Other)
  Sender: FDA-Public Use
  Company Number: FR-009507513-1604FRA009393

PATIENT
  Age: 72 Year
  Sex: Female

DRUGS (4)
  1. NORSET [Suspect]
     Active Substance: MIRTAZAPINE
     Dosage: UNK
     Route: 048
     Dates: end: 20160307
  2. IMOVANE [Suspect]
     Active Substance: ZOPICLONE
     Dosage: 1 DF, QD
     Route: 048
     Dates: end: 20160307
  3. PSYLLIUM HUSK [Suspect]
     Active Substance: PSYLLIUM HUSK
     Dosage: UNK
     Route: 048
     Dates: end: 20160307
  4. ZYPREXA [Suspect]
     Active Substance: OLANZAPINE
     Dosage: UNK
     Route: 048
     Dates: end: 20160307

REACTIONS (1)
  - Diabetic ketoacidosis [Recovering/Resolving]

NARRATIVE: CASE EVENT DATE: 20160307
